FAERS Safety Report 19415020 (Version 2)
Quarter: 2021Q2

REPORT INFORMATION
  Report Type: Spontaneous
  Country: US (occurrence: US)
  Receive Date: 20210614
  Receipt Date: 20210617
  Transmission Date: 20210717
  Serious: Yes (Other)
  Sender: FDA-Public Use
  Company Number: US-BIOMARINAP-US-2021-136977

PATIENT
  Sex: Female

DRUGS (2)
  1. PALYNZIQ [Suspect]
     Active Substance: PEGVALIASE-PQPZ
     Indication: PHENYLKETONURIA
     Route: 058
  2. DEPO?PROVERA [Concomitant]
     Active Substance: MEDROXYPROGESTERONE ACETATE
     Indication: CONTRACEPTION

REACTIONS (7)
  - Skin reaction [Unknown]
  - Erythema [Unknown]
  - Abortion spontaneous [Unknown]
  - Pruritus [Unknown]
  - Abdominal pain [Unknown]
  - Maternal exposure during pregnancy [Recovered/Resolved]
  - Arthralgia [Unknown]
